FAERS Safety Report 21036153 (Version 1)
Quarter: 2022Q3

REPORT INFORMATION
  Report Type: Spontaneous
  Country: US (occurrence: US)
  Receive Date: 20220701
  Receipt Date: 20220701
  Transmission Date: 20221027
  Serious: No
  Sender: FDA-Public Use
  Company Number: US-THERAPEUTICSMD-2021TMD02153

PATIENT
  Age: 68 Year
  Sex: Female
  Weight: 102.04 kg

DRUGS (8)
  1. IMVEXXY [Suspect]
     Active Substance: ESTRADIOL
     Indication: Vulvovaginal dryness
     Dosage: 4 ?G, 1X/DAY
     Route: 067
     Dates: start: 20210621, end: 20210623
  2. IMVEXXY [Suspect]
     Active Substance: ESTRADIOL
     Indication: Bladder prolapse
     Dosage: UNK
     Route: 067
     Dates: start: 20210627, end: 2021
  3. IMVEXXY [Suspect]
     Active Substance: ESTRADIOL
     Dosage: 4 ?G, 2X/WEEK
     Route: 067
     Dates: start: 2021
  4. INSULIN NOS [Concomitant]
     Active Substance: INSULIN NOS
  5. INSULIN NOS [Concomitant]
     Active Substance: INSULIN NOS
  6. INSULIN NOS [Concomitant]
     Active Substance: INSULIN NOS
  7. ATORVASTATIN [Concomitant]
     Active Substance: ATORVASTATIN
  8. MAGNESIUM [Concomitant]
     Active Substance: MAGNESIUM

REACTIONS (4)
  - Vulvovaginal injury [Recovered/Resolved]
  - Product administration error [Unknown]
  - Intentional dose omission [Recovered/Resolved]
  - Vaginal haemorrhage [Recovered/Resolved]

NARRATIVE: CASE EVENT DATE: 20210601
